FAERS Safety Report 11358826 (Version 1)
Quarter: 2015Q3

REPORT INFORMATION
  Report Type: Spontaneous
  Country: US (occurrence: None)
  Receive Date: 20150807
  Receipt Date: 20150807
  Transmission Date: 20151125
  Serious: Yes (Hospitalization, Disabling, Other)
  Sender: FDA-Public Use
  Company Number: None

PATIENT
  Age: 29 Year
  Sex: Male
  Weight: 70.31 kg

DRUGS (3)
  1. LEVAQUIN [Suspect]
     Active Substance: LEVOFLOXACIN
     Indication: INFECTION PROPHYLAXIS
     Dates: start: 20141218, end: 20141228
  2. MULTIPLE VITAMIN AND MINERAL [Concomitant]
  3. DIGESTIVE AIDS [Concomitant]

REACTIONS (15)
  - Panic attack [None]
  - Asthenia [None]
  - Thirst [None]
  - Hypotension [None]
  - Paraesthesia [None]
  - Body temperature decreased [None]
  - Impaired work ability [None]
  - Jaundice [None]
  - Headache [None]
  - Weight decreased [None]
  - Tremor [None]
  - Burning sensation [None]
  - Blood glucose fluctuation [None]
  - Visual impairment [None]
  - Dyspepsia [None]

NARRATIVE: CASE EVENT DATE: 20141229
